FAERS Safety Report 8092950-2 (Version None)
Quarter: 2012Q1

REPORT INFORMATION
  Report Type: 
  Country: None (occurrence: None)
  Receive Date: 20120125
  Receipt Date: 20120112
  Transmission Date: 20120608
  Serious: Yes (Life-Threatening, Hospitalization)
  Sender: FDA-Public Use
  Company Number: US-007529

PATIENT
  Age: 73 Year
  Sex: Male
  Weight: 83.4619 kg

DRUGS (11)
  1. ZOMETA [Concomitant]
  2. DETROL LA [Concomitant]
  3. COREG [Concomitant]
  4. WELCHOL [Concomitant]
  5. SPIRONOLACTONE [Concomitant]
  6. FIRMAGON [Suspect]
     Indication: PROSTATE CANCER
     Dosage: (240 MG 1X SUBCUTANEOUS)
     Route: 058
     Dates: start: 20120106
  7. ASPIRIN [Concomitant]
  8. NIASPAN [Concomitant]
  9. ZITHROMAX [Concomitant]
  10. DIGOXIN [Concomitant]
  11. LISINOPRIL [Concomitant]

REACTIONS (2)
  - CEREBROVASCULAR ACCIDENT [None]
  - METASTASIS [None]
